FAERS Safety Report 5731772-1 (Version None)
Quarter: 2008Q2

REPORT INFORMATION
  Report Type: 
  Country: None (occurrence: None)
  Receive Date: 20080508
  Receipt Date: 20080428
  Transmission Date: 20081010
  Serious: Yes (Hospitalization)
  Sender: FDA-Public Use
  Company Number: GB-ROCHE-541793

PATIENT
  Sex: Female
  Weight: 88.9 kg

DRUGS (12)
  1. ORLISTAT [Suspect]
     Indication: OBESITY
     Route: 048
     Dates: start: 20070801
  2. BISOPROLOL FUMARATE [Suspect]
     Indication: DRUG THERAPY
     Dosage: DRUG ONGOING REPORTED AS ? 14/01/2008
     Route: 065
     Dates: start: 20071109, end: 20080114
  3. DILTIAZEM [Suspect]
     Indication: DRUG THERAPY
     Dosage: DRUG ONGOING REPORTED AS ? 09/11/2007
     Route: 065
     Dates: start: 20071001, end: 20071109
  4. METFORMIN HCL [Concomitant]
     Route: 048
     Dates: start: 20060620
  5. ISOSORBIDE DINITRATE [Concomitant]
     Indication: ANGINA PECTORIS
     Route: 048
  6. LEVOTHYROXINE SODIUM [Concomitant]
     Indication: HYPOTHYROIDISM
     Route: 048
     Dates: start: 20061103
  7. LISINOPRIL [Concomitant]
     Indication: HYPERTENSION
     Route: 048
     Dates: start: 20041026
  8. ASPIRIN [Concomitant]
     Route: 048
     Dates: start: 20041026
  9. SIMVASTATIN [Concomitant]
     Dosage: EVERY NIGHT (ON)
     Route: 048
     Dates: start: 20040113
  10. GTN-S [Concomitant]
     Indication: ANGINA PECTORIS
     Dosage: FORM: INHALER SPRAY
     Route: 055
     Dates: start: 20050519
  11. ISOSORBIDE MONONITRATE [Concomitant]
  12. FUROSEMIDE [Concomitant]
     Dates: start: 20060525

REACTIONS (1)
  - BRADYCARDIA [None]
